FAERS Safety Report 20235296 (Version 4)
Quarter: 2022Q1

REPORT INFORMATION
  Report Type: Report from Study
  Country: ES (occurrence: ES)
  Receive Date: 20211228
  Receipt Date: 20220202
  Transmission Date: 20220423
  Serious: Yes (Other)
  Sender: FDA-Public Use
  Company Number: ES-CELLTRION INC.-2021ES017503

PATIENT

DRUGS (4)
  1. TRASTUZUMAB [Suspect]
     Active Substance: TRASTUZUMAB
     Indication: Breast cancer
     Dosage: 306 MILLIGRAM (14/OCT/2021, SHE RECEIVED MOST RECENT DOSE PRIOR TO EVENT)
     Route: 041
     Dates: start: 20210216
  2. PERTUZUMAB [Suspect]
     Active Substance: PERTUZUMAB
     Indication: Breast cancer
     Dosage: 420 MILLIGRAM (14/OCT/2021, SHE RECEIVED MOST RECENT DOSE PRIOR TO EVENT)
     Route: 042
     Dates: start: 20210216
  3. ATEZOLIZUMAB [Concomitant]
     Active Substance: ATEZOLIZUMAB
     Indication: Breast cancer
     Dosage: 1200 MG, LAST DOSE BEFORE SAE: 02/09/2021
     Route: 041
     Dates: start: 20210216, end: 20211014
  4. ANASTROZOLE [Concomitant]
     Active Substance: ANASTROZOLE
     Indication: Breast cancer
     Dosage: UNK
     Dates: start: 20210723

REACTIONS (2)
  - Cardiotoxicity [Not Recovered/Not Resolved]
  - Off label use [Unknown]

NARRATIVE: CASE EVENT DATE: 20211020
